FAERS Safety Report 4765341-7 (Version None)
Quarter: 2005Q3

REPORT INFORMATION
  Report Type: 
  Country: None (occurrence: None)
  Receive Date: 20050909
  Receipt Date: 20050617
  Transmission Date: 20060218
  Serious: Yes (Hospitalization, Other)
  Sender: FDA-Public Use
  Company Number: US-MERCK-0506USA02957

PATIENT
  Age: 65 Year
  Sex: Male
  Weight: 80 kg

DRUGS (19)
  1. VIOXX [Suspect]
     Indication: OSTEOARTHRITIS
     Route: 048
     Dates: start: 20010516, end: 20040208
  2. ASPIRIN [Concomitant]
     Indication: PROPHYLAXIS
     Route: 048
     Dates: start: 19880101
  3. LIPITOR [Concomitant]
     Route: 048
     Dates: start: 20010824
  4. NITROQUICK [Concomitant]
     Route: 065
  5. BAYCOL [Concomitant]
     Route: 065
  6. ISOSORBIDE MONONITRATE ER [Concomitant]
     Route: 065
     Dates: start: 19980101
  7. CAVERJECT [Concomitant]
     Route: 065
  8. AMITRIPTYLINE HYDROCHLORIDE [Concomitant]
     Route: 065
  9. ACULAR [Concomitant]
     Route: 065
  10. TRIMOX [Concomitant]
     Route: 065
  11. LOPROX [Concomitant]
     Route: 065
  12. OCUFLOX [Concomitant]
     Route: 065
  13. PROTONIX [Concomitant]
     Route: 065
  14. CLAVULANATE POTASSIUM [Concomitant]
     Route: 065
  15. HYDROCHLOROTHIAZIDE [Concomitant]
     Route: 065
  16. LAMISIL [Concomitant]
     Route: 065
  17. NITRO [Concomitant]
     Route: 065
  18. VERAPAMIL [Concomitant]
     Route: 065
  19. WARFARIN [Concomitant]
     Route: 065
     Dates: start: 19980101, end: 20050427

REACTIONS (19)
  - ABDOMINAL DISTENSION [None]
  - ARRHYTHMIA [None]
  - ATRIAL FIBRILLATION [None]
  - CARDIAC FAILURE CONGESTIVE [None]
  - COLONIC POLYP [None]
  - CONSTIPATION [None]
  - DILATATION VENTRICULAR [None]
  - DIZZINESS [None]
  - EJECTION FRACTION DECREASED [None]
  - EXTRASYSTOLES [None]
  - FLATULENCE [None]
  - HYPOAESTHESIA [None]
  - ISCHAEMIC CARDIOMYOPATHY [None]
  - MITRAL VALVE INCOMPETENCE [None]
  - MYOCARDIAL INFARCTION [None]
  - OEDEMA PERIPHERAL [None]
  - RECTAL HAEMORRHAGE [None]
  - SINUS BRADYCARDIA [None]
  - TRICUSPID VALVE INCOMPETENCE [None]
